FAERS Safety Report 8955776 (Version 2)
Quarter: 2013Q1

REPORT INFORMATION
  Report Type: Report from Study
  Country: US (occurrence: US)
  Receive Date: 20121210
  Receipt Date: 20130111
  Transmission Date: 20140127
  Serious: Yes (Death)
  Sender: FDA-Public Use
  Company Number: US-ASTELLAS-2012US011786

PATIENT
  Age: 73 Year
  Sex: Male
  Weight: 68 kg

DRUGS (6)
  1. ENZALUTAMIDE [Suspect]
     Indication: PROSTATE CANCER METASTATIC
     Dosage: 160 MG, UID/QD
     Route: 048
     Dates: start: 20120907, end: 20121106
  2. XTANDI [Suspect]
     Indication: PROSTATE CANCER METASTATIC
     Dosage: 160 MG, UID/QD
     Route: 048
     Dates: start: 20121107, end: 20121126
  3. CALCIUM 600 PLUS VITAMIN D3 [Concomitant]
     Indication: PROPHYLAXIS
     Dosage: 1 DF, UID/QD
     Route: 048
     Dates: start: 2011
  4. ONE A DAY                          /02262701/ [Concomitant]
     Indication: SUPPLEMENTATION THERAPY
     Dosage: 1 DF, UID/QD
     Route: 048
     Dates: start: 2007
  5. MORPHINE SULFATE [Concomitant]
     Indication: BONE PAIN
     Dosage: 15 MG, 4-6 HRS, PRN
     Route: 048
     Dates: start: 20110727
  6. VITAMIN C                          /00008001/ [Concomitant]
     Indication: SUPPLEMENTATION THERAPY
     Dosage: 600 MG, UID/QD
     Route: 048
     Dates: start: 20121002

REACTIONS (1)
  - Acute myocardial infarction [Fatal]
